FAERS Safety Report 8286726-0 (Version None)
Quarter: 2012Q2

REPORT INFORMATION
  Report Type: 
  Country: None (occurrence: None)
  Receive Date: 20120416
  Receipt Date: 20120409
  Transmission Date: 20120825
  Serious: Yes (Hospitalization)
  Sender: FDA-Public Use
  Company Number: US-BAYER-2012-034643

PATIENT
  Sex: Male

DRUGS (3)
  1. BETAPACE AF [Suspect]
     Dosage: DAILY DOSE 160 MG
     Route: 048
  2. BETAPACE AF [Suspect]
     Indication: ATRIAL FIBRILLATION
     Dosage: DAILY DOSE 320 MG
     Route: 048
     Dates: start: 20060101
  3. BETAPACE AF [Suspect]
     Dosage: DAILY DOSE 320 MG
     Route: 048

REACTIONS (2)
  - BLOOD CREATININE INCREASED [None]
  - HOSPITALISATION [None]
